FAERS Safety Report 8092603-0 (Version None)
Quarter: 2012Q1

REPORT INFORMATION
  Report Type: 
  Country: None (occurrence: None)
  Receive Date: 20120128
  Receipt Date: 20110829
  Transmission Date: 20120608
  Serious: No
  Sender: FDA-Public Use
  Company Number: US-ABBOTT-11P-163-0850141-00

PATIENT
  Age: 31 Year
  Sex: Female

DRUGS (4)
  1. HUMIRA [Suspect]
     Indication: PSORIASIS
     Dates: start: 20110201
  2. ALLEGRA [Concomitant]
     Indication: HYPERSENSITIVITY
     Dosage: DAILY DURING ALLERGY SEASON
     Route: 048
  3. ZOLOFT [Concomitant]
     Indication: PANIC ATTACK
     Route: 048
  4. ZOLOFT [Concomitant]
     Indication: ANXIETY

REACTIONS (1)
  - PSORIASIS [None]
